FAERS Safety Report 4599546-5 (Version None)
Quarter: 2005Q1

REPORT INFORMATION
  Report Type: 
  Country: None (occurrence: None)
  Receive Date: 20050307
  Receipt Date: 20050303
  Transmission Date: 20050727
  Serious: Yes (Hospitalization, Other)
  Sender: FDA-Public Use
  Company Number: US-GLAXOSMITHKLINE-A0548221A

PATIENT

DRUGS (1)
  1. AVANDAMET [Suspect]
     Route: 048
     Dates: end: 20050101

REACTIONS (1)
  - LEUKOCYTOCLASTIC VASCULITIS [None]
